FAERS Safety Report 5338768-2 (Version None)
Quarter: 2007Q2

REPORT INFORMATION
  Report Type: 
  Country: None (occurrence: None)
  Receive Date: 20070322
  Receipt Date: 20060417
  Transmission Date: 20071010
  Serious: Yes (Other)
  Sender: FDA-Public Use
  Company Number: 200610975BCC

PATIENT
  Age: 26 Year
  Sex: Female
  Weight: 78.0187 kg

DRUGS (1)
  1. ALEVE [Suspect]
     Indication: DYSMENORRHOEA
     Dosage: 220 MG, ORAL
     Route: 048
     Dates: start: 20060303

REACTIONS (4)
  - DIZZINESS [None]
  - DYSMENORRHOEA [None]
  - HAEMATEMESIS [None]
  - NAUSEA [None]
